FAERS Safety Report 6945401-2 (Version None)
Quarter: 2010Q3

REPORT INFORMATION
  Report Type: 
  Country: None (occurrence: None)
  Receive Date: 20100817
  Receipt Date: 20090729
  Transmission Date: 20110219
  Serious: No
  Sender: FDA-Public Use
  Company Number: 20096304

PATIENT
  Sex: Female

DRUGS (2)
  1. LIORESAL [Suspect]
     Indication: MUSCLE SPASTICITY
     Dosage: 214.9 MCG, DAILY, INTRATHECAL
     Route: 037
  2. ORAL BACLOFEN [Concomitant]

REACTIONS (9)
  - DRUG INEFFECTIVE [None]
  - GAIT DISTURBANCE [None]
  - HEADACHE [None]
  - HYPERTONIA [None]
  - INJURY [None]
  - MUSCLE SPASTICITY [None]
  - MUSCLE TIGHTNESS [None]
  - NAUSEA [None]
  - PAIN [None]
